FAERS Safety Report 5316575-4 (Version None)
Quarter: 2007Q2

REPORT INFORMATION
  Report Type: 
  Country: None (occurrence: None)
  Receive Date: 20070504
  Receipt Date: 20070426
  Transmission Date: 20071010
  Serious: Yes (Death, Hospitalization)
  Sender: FDA-Public Use
  Company Number: FR-JNJFOC-20070406495

PATIENT
  Age: 29 Year
  Sex: Male

DRUGS (16)
  1. RISPERDAL [Suspect]
     Route: 048
  2. RISPERDAL [Suspect]
     Route: 048
  3. RISPERDAL [Suspect]
     Route: 048
  4. RISPERDAL [Suspect]
     Indication: ABNORMAL BEHAVIOUR
     Route: 048
  5. DEPAKENE [Suspect]
  6. DEPAKENE [Suspect]
  7. DEPAKENE [Suspect]
  8. DEPAKENE [Suspect]
  9. DEPAKENE [Suspect]
  10. DEPAKENE [Suspect]
     Indication: EPILEPSY
  11. TEGRETOL [Suspect]
     Route: 048
  12. TEGRETOL [Suspect]
     Route: 048
  13. TEGRETOL [Suspect]
     Route: 048
  14. TEGRETOL [Suspect]
     Route: 048
  15. TEGRETOL [Suspect]
     Route: 048
  16. TEGRETOL [Suspect]
     Indication: EPILEPSY
     Route: 048

REACTIONS (2)
  - LUNG DISORDER [None]
  - STATUS EPILEPTICUS [None]
